FAERS Safety Report 23601153 (Version 1)
Quarter: 2024Q1

REPORT INFORMATION
  Report Type: Spontaneous
  Country: GB (occurrence: GB)
  Receive Date: 20240306
  Receipt Date: 20240306
  Transmission Date: 20240410
  Serious: Yes (Other)
  Sender: FDA-Public Use
  Company Number: GB-002147023-NVSC2024GB044787

PATIENT
  Sex: Female

DRUGS (3)
  1. TEGRETOL [Suspect]
     Active Substance: CARBAMAZEPINE
     Indication: Seizure
     Dosage: UNK
     Route: 065
  2. TEGRETOL [Suspect]
     Active Substance: CARBAMAZEPINE
     Indication: Seizure
     Dosage: UNK
     Route: 065
  3. ESLICARBAZEPINE [Suspect]
     Active Substance: ESLICARBAZEPINE
     Indication: Seizure
     Dosage: 400 MG IN THE EVENING
     Route: 065

REACTIONS (8)
  - Cerebrovascular accident [Unknown]
  - Bell^s palsy [Unknown]
  - Facial paralysis [Unknown]
  - Seizure [Unknown]
  - Stress [Unknown]
  - Dysarthria [Unknown]
  - Fall [Unknown]
  - Product availability issue [Unknown]
